FAERS Safety Report 4958090-3 (Version None)
Quarter: 2006Q1

REPORT INFORMATION
  Report Type: 
  Country: None (occurrence: None)
  Receive Date: 20060330
  Receipt Date: 20050426
  Transmission Date: 20060701
  Serious: Yes (Hospitalization, Disabling)
  Sender: FDA-Public Use
  Company Number: US-MERCK-0504USA04855

PATIENT
  Age: 54 Year
  Sex: Male
  Weight: 65 kg

DRUGS (2)
  1. VIOXX [Suspect]
     Indication: ARTHRITIS
     Route: 048
     Dates: start: 20010101, end: 20010701
  2. VIOXX [Suspect]
     Route: 048
     Dates: start: 20010701, end: 20040930

REACTIONS (7)
  - ACUTE MYOCARDIAL INFARCTION [None]
  - CORONARY ARTERY DISEASE [None]
  - INJURY [None]
  - LIMB OPERATION [None]
  - MUSCULOSKELETAL DISORDER [None]
  - TENDON DISORDER [None]
  - TOE OPERATION [None]
